FAERS Safety Report 6221652-X (Version None)
Quarter: 2009Q2

REPORT INFORMATION
  Report Type: 
  Country: None (occurrence: None)
  Receive Date: 20090610
  Receipt Date: 20090529
  Transmission Date: 20091009
  Serious: Yes (Other)
  Sender: FDA-Public Use
  Company Number: PHHY2009FR21820

PATIENT
  Sex: Male

DRUGS (1)
  1. TAREG [Suspect]
     Dosage: 160 MG, UNK

REACTIONS (1)
  - BLISTER [None]
